FAERS Safety Report 6088484-7 (Version None)
Quarter: 2009Q1

REPORT INFORMATION
  Report Type: 
  Country: None (occurrence: None)
  Receive Date: 20090220
  Receipt Date: 20090220
  Transmission Date: 20090719
  Serious: Yes (Other)
  Sender: FDA-Public Use
  Company Number: None

PATIENT
  Age: 8 Year
  Sex: Male
  Weight: 22 kg

DRUGS (18)
  1. RACEMIC EPINEPHRINE 2.25% NEPHRON PHARMACEUTICALS [Suspect]
     Indication: RESPIRATORY DISTRESS
     Dosage: 0.5 ML Q4H INHAL, 2 DOSES
     Route: 055
     Dates: start: 20090218, end: 20090218
  2. LEVALBUTEROL HCL [Concomitant]
  3. AZITHROMYCIN [Concomitant]
  4. BACLOFEN [Concomitant]
  5. PULMICORT-100 [Concomitant]
  6. CEFEPIME [Concomitant]
  7. CLONAZEPAM [Concomitant]
  8. LASIX [Concomitant]
  9. ATROVENT [Concomitant]
  10. LATINEX [Concomitant]
  11. LACTULOSE [Concomitant]
  12. LAMOTRIGINE [Concomitant]
  13. KEPPRA [Concomitant]
  14. LORATADINE [Concomitant]
  15. NASONEX [Concomitant]
  16. POTASSIUM CHLORIDE [Concomitant]
  17. ALDACTONE [Concomitant]
  18. TOBRAMYCIN [Concomitant]

REACTIONS (1)
  - BRADYCARDIA [None]
